FAERS Safety Report 25970976 (Version 1)
Quarter: 2025Q4

REPORT INFORMATION
  Report Type: Spontaneous
  Country: US (occurrence: US)
  Receive Date: 20251028
  Receipt Date: 20251028
  Transmission Date: 20260117
  Serious: No
  Sender: PFIZER
  Company Number: US-PFIZER INC-202500212490

PATIENT
  Sex: Female

DRUGS (1)
  1. NURTEC ODT [Suspect]
     Active Substance: RIMEGEPANT SULFATE
     Indication: Migraine
     Dosage: DAILY AS NEEDED
     Dates: start: 20250601, end: 20251024

REACTIONS (1)
  - Tongue disorder [Recovering/Resolving]

NARRATIVE: CASE EVENT DATE: 20251001
